FAERS Safety Report 6772237-8 (Version None)
Quarter: 2010Q2

REPORT INFORMATION
  Report Type: 
  Country: None (occurrence: None)
  Receive Date: 20100616
  Receipt Date: 20091203
  Transmission Date: 20101027
  Serious: No
  Sender: FDA-Public Use
  Company Number: US-ASTRAZENECA-2009SE30124

PATIENT
  Age: 53 Year
  Sex: Female
  Weight: 55.8 kg

DRUGS (2)
  1. PULMICORT FLEXIHALER [Suspect]
     Route: 055
     Dates: start: 20080101
  2. XANAX [Concomitant]

REACTIONS (2)
  - DRY THROAT [None]
  - DYSPNOEA [None]
